FAERS Safety Report 4934851-1 (Version None)
Quarter: 2006Q1

REPORT INFORMATION
  Report Type: 
  Country: None (occurrence: None)
  Receive Date: 20060303
  Receipt Date: 20060215
  Transmission Date: 20060701
  Serious: Yes (Hospitalization)
  Sender: FDA-Public Use
  Company Number: 222608

PATIENT
  Age: 45 Year
  Sex: Female

DRUGS (7)
  1. AVASTIN [Suspect]
     Indication: COLORECTAL CANCER METASTATIC
     Dosage: 7.5 MG/KG, Q3W, INTRAVENOUS
     Route: 042
     Dates: start: 20060202
  2. CAPECITABINE (CAPECITABINE) [Suspect]
     Indication: COLORECTAL CANCER METASTATIC
     Dosage: 3600 MG QD ORAL
     Route: 048
  3. ASPIRIN [Concomitant]
  4. ESOMEPRAZOLE (ESOMEPRAZOLE MAGNESIUM) [Concomitant]
  5. DIAZEPAM [Concomitant]
  6. PYRIDOXINE HCL [Concomitant]
  7. MAGNESIUM ASPARTATE [Concomitant]

REACTIONS (1)
  - PYREXIA [None]
